FAERS Safety Report 4554196-1 (Version None)
Quarter: 2005Q1

REPORT INFORMATION
  Report Type: 
  Country: None (occurrence: None)
  Receive Date: 20050118
  Receipt Date: 20040618
  Transmission Date: 20050727
  Serious: Yes (Other)
  Sender: FDA-Public Use
  Company Number: PHNU2004DE02255

PATIENT
  Age: 65 Year
  Sex: Male
  Weight: 76 kg

DRUGS (4)
  1. ALCOHOL [Suspect]
     Dosage: UNK, UNK
     Dates: start: 20040611, end: 20040611
  2. LAMISIL [Suspect]
     Indication: ONYCHOMYCOSIS
     Dosage: 250 MG, QOD
     Route: 048
     Dates: start: 20040101, end: 20041001
  3. BELOC ZOK [Concomitant]
     Indication: ESSENTIAL HYPERTENSION
     Dosage: 95 MG/DAY
  4. MAGNESIUM VERLA DRAGEES [Concomitant]
     Indication: MUSCLE SPASMS
     Dosage: 90 MG/DAY

REACTIONS (5)
  - DIZZINESS [None]
  - FATIGUE [None]
  - HANGOVER [None]
  - PROSTATE CANCER [None]
  - PROSTATIC OPERATION [None]
